FAERS Safety Report 21247319 (Version 2)
Quarter: 2022Q3

REPORT INFORMATION
  Report Type: Spontaneous
  Country: US (occurrence: US)
  Receive Date: 20220824
  Receipt Date: 20220922
  Transmission Date: 20221026
  Serious: No
  Sender: FDA-Public Use
  Company Number: US-PFIZER INC-PV202200047960

PATIENT
  Age: 43 Year
  Sex: Female

DRUGS (4)
  1. XELJANZ XR [Suspect]
     Active Substance: TOFACITINIB CITRATE
     Indication: Psoriatic arthropathy
     Dosage: 11 MG, 1X/DAY
     Route: 048
     Dates: start: 202101
  2. XELJANZ XR [Suspect]
     Active Substance: TOFACITINIB CITRATE
     Indication: Rheumatoid arthritis
     Dosage: 11 MG, 1X/DAY (ONCE DAILY)
     Route: 048
     Dates: start: 202108
  3. FOLIC ACID [Concomitant]
     Active Substance: FOLIC ACID
     Dosage: UNK
  4. METHOTREXATE SODIUM [Concomitant]
     Active Substance: METHOTREXATE SODIUM
     Dosage: UNK

REACTIONS (12)
  - Product dose omission issue [Unknown]
  - Staphylococcal infection [Unknown]
  - Depressed mood [Unknown]
  - Drug hypersensitivity [Unknown]
  - Discouragement [Unknown]
  - Psoriasis [Recovering/Resolving]
  - Rash [Unknown]
  - Illness [Unknown]
  - Bronchitis [Unknown]
  - COVID-19 [Unknown]
  - Liver function test abnormal [Unknown]
  - Blood cholesterol increased [Unknown]
